FAERS Safety Report 8124170-7 (Version None)
Quarter: 2012Q1

REPORT INFORMATION
  Report Type: 
  Country: None (occurrence: None)
  Receive Date: 20120209
  Receipt Date: 20120201
  Transmission Date: 20120608
  Serious: Yes (Hospitalization)
  Sender: FDA-Public Use
  Company Number: US-BAYER-2011-083364

PATIENT
  Age: 47 Year
  Sex: Female
  Weight: 73.469 kg

DRUGS (9)
  1. YAZ [Suspect]
     Indication: PREMENSTRUAL SYNDROME
  2. CYMBALTA [Concomitant]
     Dosage: UNK
     Dates: start: 19990101
  3. BIAXIN [Concomitant]
     Dosage: UNK
     Dates: start: 20061030
  4. KLONOPIN [Concomitant]
     Dosage: UNK
     Dates: start: 19990101
  5. ZYRTEC [Concomitant]
     Dosage: UNK
     Dates: start: 19990101
  6. NASONEX [Concomitant]
     Dosage: UNK
     Dates: start: 19990101
  7. ALLEGRA [Concomitant]
     Dosage: UNK
     Dates: start: 20061030
  8. YAZ [Suspect]
     Indication: ACNE
     Dosage: UNK
     Route: 048
     Dates: start: 19990101, end: 20030101
  9. TUSSIONEX [Concomitant]

REACTIONS (7)
  - CHOLECYSTECTOMY [None]
  - CHOLECYSTITIS CHRONIC [None]
  - INJURY [None]
  - ANXIETY [None]
  - EMOTIONAL DISTRESS [None]
  - ANHEDONIA [None]
  - PAIN [None]
